FAERS Safety Report 6671869-5 (Version None)
Quarter: 2010Q2

REPORT INFORMATION
  Report Type: 
  Country: None (occurrence: None)
  Receive Date: 20100407
  Receipt Date: 20100326
  Transmission Date: 20101027
  Serious: Yes (Other)
  Sender: FDA-Public Use
  Company Number: US-PFIZER INC-2010039739

PATIENT
  Sex: Female

DRUGS (7)
  1. XANAX [Suspect]
     Dosage: UNK
     Route: 065
  2. LISDEXAMFETAMINE DIMESYLATE [Suspect]
     Dosage: UNK
     Route: 065
  3. AMBIEN [Suspect]
     Dosage: UNK
     Route: 065
  4. BUPRENORPHINE HYDROCHLORIDE/NALOXONE HYDROCHLORIDE [Suspect]
     Dosage: UNK
     Route: 065
  5. MARIJUANA [Suspect]
     Dosage: UNK
     Route: 065
  6. FOCALIN [Suspect]
     Dosage: UNK
     Route: 065
  7. ADDERALL 30 [Suspect]
     Dosage: UNK
     Route: 065

REACTIONS (7)
  - DIZZINESS [None]
  - DRUG DIVERSION [None]
  - DRUG TOXICITY [None]
  - GAIT DISTURBANCE [None]
  - HYPOKINESIA [None]
  - LOSS OF CONSCIOUSNESS [None]
  - PUPIL FIXED [None]
